FAERS Safety Report 5633410-5 (Version None)
Quarter: 2008Q1

REPORT INFORMATION
  Report Type: 
  Country: None (occurrence: None)
  Receive Date: 20080221
  Receipt Date: 20061204
  Transmission Date: 20080703
  Serious: Yes (Life-Threatening, Hospitalization, Other)
  Sender: FDA-Public Use
  Company Number: US-PFIZER INC-2006136733

PATIENT
  Age: 16 Year
  Sex: Female
  Weight: 79 kg

DRUGS (16)
  1. CELEBREX [Suspect]
     Indication: GLIOBLASTOMA MULTIFORME
     Route: 048
  2. FLUCONAZOLE [Suspect]
     Indication: VAGINAL CANDIDIASIS
  3. THALIDOMIDE [Suspect]
     Indication: GLIOBLASTOMA MULTIFORME
     Route: 048
     Dates: start: 20060821, end: 20061101
  4. FENOFIBRATE [Concomitant]
  5. ZOFRAN [Concomitant]
  6. MIRALAX [Concomitant]
  7. DIAZEPAM [Concomitant]
  8. CYCLOPHOSPHAMIDE [Concomitant]
     Dosage: DAILY DOSE:100MG
     Route: 048
     Dates: start: 20060911
  9. DEXAMETHASONE TAB [Concomitant]
     Dates: start: 20060801, end: 20061001
  10. KEPPRA [Concomitant]
     Route: 048
     Dates: start: 20061002
  11. ASPIRIN [Concomitant]
     Dosage: DAILY DOSE:81MG
     Dates: start: 20060901
  12. LEVOTHYROXINE SODIUM [Concomitant]
     Dosage: DAILY DOSE:.1MG
     Route: 048
     Dates: start: 20060801
  13. ZANTAC 150 [Concomitant]
     Dates: start: 20060801
  14. OXYCODONE HCL [Concomitant]
     Route: 048
  15. CETIRIZINE HCL [Concomitant]
     Route: 048
  16. ETOPOSIDE [Concomitant]
     Route: 048
     Dates: start: 20060821

REACTIONS (7)
  - CEREBROVASCULAR ACCIDENT [None]
  - COMPLEX PARTIAL SEIZURES [None]
  - DYSARTHRIA [None]
  - PULMONARY EMBOLISM [None]
  - SCAN MYOCARDIAL PERFUSION ABNORMAL [None]
  - VAGINAL CANDIDIASIS [None]
  - VENOUS THROMBOSIS LIMB [None]
